FAERS Safety Report 9559462 (Version 1)
Quarter: 2013Q3

REPORT INFORMATION
  Report Type: Spontaneous
  Country: JP (occurrence: JP)
  Receive Date: 20130927
  Receipt Date: 20130927
  Transmission Date: 20140515
  Serious: Yes (Hospitalization)
  Sender: FDA-Public Use
  Company Number: JP-ACCORD-019610

PATIENT
  Age: 15 Year
  Sex: Female

DRUGS (4)
  1. ETOPOSIDE [Suspect]
     Indication: ALVEOLAR RHABDOMYOSARCOMA
     Route: 042
  2. VINCRISTINE [Suspect]
     Indication: ALVEOLAR RHABDOMYOSARCOMA
     Dosage: ON DAYS 1 AND 8
     Route: 042
  3. ACTINOMYCIN D [Suspect]
     Indication: ALVEOLAR RHABDOMYOSARCOMA
     Dosage: 0.015 MG/KG
     Route: 042
  4. IFOSFAMIDE [Suspect]
     Indication: ALVEOLAR RHABDOMYOSARCOMA
     Dosage: FOR 5 DAYS
     Route: 042

REACTIONS (7)
  - Rhabdomyolysis [Recovering/Resolving]
  - Altered state of consciousness [Recovered/Resolved]
  - Respiratory failure [Recovered/Resolved]
  - Renal failure acute [Recovered/Resolved]
  - Hepatic function abnormal [Recovered/Resolved]
  - Disseminated intravascular coagulation [Recovered/Resolved]
  - Off label use [Unknown]
